FAERS Safety Report 9445756 (Version 1)
Quarter: 2013Q3

REPORT INFORMATION
  Report Type: Spontaneous
  Country: FR (occurrence: FR)
  Receive Date: 20130807
  Receipt Date: 20130807
  Transmission Date: 20140515
  Serious: Yes (Hospitalization)
  Sender: FDA-Public Use
  Company Number: FR-BRISTOL-MYERS SQUIBB COMPANY-19166321

PATIENT
  Age: 86 Year
  Sex: Female

DRUGS (9)
  1. GLUCOPHAGE TABS 500 MG [Suspect]
     Route: 048
     Dates: start: 20130109, end: 20130109
  2. PRAVASTATIN SODIUM [Suspect]
  3. AUGMENTIN [Suspect]
     Dates: start: 201210, end: 20130109
  4. PRADAXA [Suspect]
     Dates: start: 20121027, end: 201301
  5. INEXIUM [Suspect]
     Dates: end: 20130109
  6. MOVICOL [Suspect]
     Route: 048
     Dates: end: 20130109
  7. CORDARONE [Suspect]
     Dates: end: 20130108
  8. KARDEGIC [Suspect]
     Dates: end: 20130212
  9. LASILIX [Suspect]
     Route: 048
     Dates: end: 20130212

REACTIONS (2)
  - Hepatitis cholestatic [Recovering/Resolving]
  - Hepatitis [Recovering/Resolving]
